FAERS Safety Report 8837384 (Version 4)
Quarter: 2013Q2

REPORT INFORMATION
  Report Type: Spontaneous
  Country: US (occurrence: US)
  Receive Date: 20121012
  Receipt Date: 20130619
  Transmission Date: 20140414
  Serious: Yes (Other)
  Sender: FDA-Public Use
  Company Number: US-PFIZER INC-2012250709

PATIENT
  Age: 85 Year
  Sex: Male
  Weight: 68.93 kg

DRUGS (6)
  1. SUTENT [Suspect]
     Indication: METASTATIC CARCINOID TUMOUR
     Dosage: 50 MG, CYCLIC, FIRST 42 DAY CYCLE
     Dates: start: 20120910, end: 20121022
  2. SUTENT [Suspect]
     Dosage: 50 MG, CYCLIC, THREE WEEK ON/ONE WEEK OFF CYCLE (28 DAY CYCLE)
     Dates: start: 20121120, end: 20130116
  3. SUTENT [Suspect]
     Dosage: 50 MG, CYCLIC, (DAILY-ON 2WEEKS ON AND 1 WEEK OFF)
  4. ATENOLOL [Concomitant]
     Dosage: UNK
  5. LESCOL [Concomitant]
     Dosage: UNK
  6. IMODIUM [Concomitant]
     Dosage: UNK

REACTIONS (9)
  - Haemorrhoidal haemorrhage [Unknown]
  - Chemical injury [Recovering/Resolving]
  - Diarrhoea [Recovering/Resolving]
  - Blood pressure increased [Recovering/Resolving]
  - Rash [Unknown]
  - Infection [Unknown]
  - Erythema [Unknown]
  - Dry skin [Unknown]
  - Dysgeusia [Unknown]
